FAERS Safety Report 10451035 (Version 1)
Quarter: 2014Q3

REPORT INFORMATION
  Report Type: Spontaneous
  Country: FI (occurrence: FI)
  Receive Date: 20140912
  Receipt Date: 20140912
  Transmission Date: 20150326
  Serious: Yes (Hospitalization)
  Sender: FDA-Public Use
  Company Number: FI-ABBVIE-14K-055-1281354-00

PATIENT
  Age: 33 Year
  Sex: Male

DRUGS (1)
  1. HUMIRA [Suspect]
     Active Substance: ADALIMUMAB
     Indication: CROHN^S DISEASE
     Dates: end: 20140822

REACTIONS (2)
  - Fistula [Unknown]
  - Drug ineffective [Unknown]
